FAERS Safety Report 23495727 (Version 1)
Quarter: 2024Q1

REPORT INFORMATION
  Report Type: Spontaneous
  Country: US (occurrence: US)
  Receive Date: 20240207
  Receipt Date: 20240207
  Transmission Date: 20240410
  Serious: Yes (Other)
  Sender: FDA-Public Use
  Company Number: US-INCYTE CORPORATION-2024IN001316

PATIENT

DRUGS (1)
  1. OPZELURA [Suspect]
     Active Substance: RUXOLITINIB PHOSPHATE
     Dosage: UNK, APPLY A THIN LAYER TO AFFECTED AREA(S) TWICE DAILY (MORNING AND AT BEDTIME)
     Route: 061
     Dates: start: 20231201

REACTIONS (1)
  - Neoplasm malignant [Unknown]
